FAERS Safety Report 7905832-0 (Version None)
Quarter: 2011Q4

REPORT INFORMATION
  Report Type: 
  Country: None (occurrence: None)
  Receive Date: 20111108
  Receipt Date: 20111024
  Transmission Date: 20120403
  Serious: Yes (Hospitalization, Other)
  Sender: FDA-Public Use
  Company Number: 2011MA015513

PATIENT
  Age: 26 Day
  Sex: Male

DRUGS (3)
  1. HYDROCORTISONE 2.5% CREAM [Suspect]
     Indication: ADRENOGENITAL SYNDROME
     Dosage: 10 MG/M**2;QD;UNK
  2. SODIUM CHLORIDE 0.9% [Suspect]
     Indication: ADRENOGENITAL SYNDROME
     Dosage: 1.8 G;QD;PO
     Route: 048
  3. FLUDROCORTISONE ACETATE [Suspect]
     Indication: ADRENOGENITAL SYNDROME
     Dosage: 0.1 MG;QD;UNK

REACTIONS (9)
  - RENIN DECREASED [None]
  - HYPERTENSION [None]
  - RETINOPATHY HYPERTENSIVE [None]
  - GASTROINTESTINAL INFECTION [None]
  - LETHARGY [None]
  - COLD SWEAT [None]
  - DRUG LEVEL ABOVE THERAPEUTIC [None]
  - HYPOTENSION [None]
  - ADRENOCORTICAL INSUFFICIENCY ACUTE [None]
